FAERS Safety Report 7282458-6 (Version None)
Quarter: 2011Q1

REPORT INFORMATION
  Report Type: 
  Country: None (occurrence: None)
  Receive Date: 20110209
  Receipt Date: 20110201
  Transmission Date: 20110831
  Serious: Yes (Hospitalization, Other)
  Sender: FDA-Public Use
  Company Number: BR-ABBOTT-10P-020-0624295-00

PATIENT
  Sex: Male
  Weight: 60 kg

DRUGS (11)
  1. SOMALGIN [Suspect]
     Indication: ANTICOAGULANT THERAPY
     Route: 048
     Dates: start: 20091101
  2. CELEBRA [Concomitant]
     Indication: PAIN
     Route: 048
     Dates: end: 20091117
  3. VIOXX [Concomitant]
     Indication: PAIN
     Route: 048
     Dates: start: 20091101
  4. HUMIRA [Suspect]
  5. COMPOR [Concomitant]
     Indication: BLOOD PRESSURE
     Route: 048
     Dates: start: 20100801
  6. PANTOPRAZOLE [Concomitant]
     Indication: GASTRIC DISORDER
     Route: 048
     Dates: start: 20091001
  7. AZULFIN [Concomitant]
     Indication: RHEUMATOID ARTHRITIS
     Route: 048
     Dates: start: 20100801
  8. LIPITOR [Concomitant]
     Indication: BLOOD CHOLESTEROL
     Route: 048
     Dates: start: 20100801
  9. CALCIUM [Concomitant]
     Indication: MINERAL SUPPLEMENTATION
     Route: 048
     Dates: start: 19960101
  10. VALTRIAN [Concomitant]
     Indication: BLOOD PRESSURE
     Route: 048
     Dates: start: 20100201
  11. HUMIRA [Suspect]
     Indication: RHEUMATOID ARTHRITIS
     Route: 058
     Dates: start: 20070901, end: 20091101

REACTIONS (14)
  - INTRAOCULAR PRESSURE TEST ABNORMAL [None]
  - EYE HAEMORRHAGE [None]
  - VISION BLURRED [None]
  - EYE DISORDER [None]
  - MUSCULOSKELETAL PAIN [None]
  - ARTHRALGIA [None]
  - EYE SWELLING [None]
  - INFARCTION [None]
  - CARDIAC OPERATION [None]
  - GLAUCOMA [None]
  - DRUG INEFFECTIVE [None]
  - KNEE ARTHROPLASTY [None]
  - BONE PAIN [None]
  - CONJUNCTIVITIS [None]
